FAERS Safety Report 21728048 (Version 8)
Quarter: 2025Q4

REPORT INFORMATION
  Report Type: Spontaneous
  Country: US (occurrence: US)
  Receive Date: 20221214
  Receipt Date: 20251103
  Transmission Date: 20260117
  Serious: Yes (Other)
  Sender: PFIZER
  Company Number: US-PFIZER INC-PV202200123466

PATIENT
  Age: 69 Year
  Sex: Female
  Weight: 90.159 kg

DRUGS (4)
  1. IBRANCE [Suspect]
     Active Substance: PALBOCICLIB
     Indication: Breast cancer metastatic
     Dosage: 125 MG, CYCLIC, DAILY DAYS 1-21, FOLLOWED BY 7 DAY BREAK
     Route: 048
  2. IBRANCE [Suspect]
     Active Substance: PALBOCICLIB
     Indication: Breast cancer
  3. FEMARA [Suspect]
     Active Substance: LETROZOLE
     Indication: Breast cancer metastatic
     Dosage: UNK
  4. FEMARA [Suspect]
     Active Substance: LETROZOLE
     Indication: Breast cancer

REACTIONS (4)
  - Breast cancer metastatic [Unknown]
  - Malignant neoplasm progression [Unknown]
  - Leukopenia [Unknown]
  - Blood test abnormal [Unknown]
